FAERS Safety Report 5327466-7 (Version None)
Quarter: 2007Q2

REPORT INFORMATION
  Report Type: 
  Country: None (occurrence: None)
  Receive Date: 20070517
  Receipt Date: 20070129
  Transmission Date: 20071010
  Serious: Yes (Hospitalization)
  Sender: FDA-Public Use
  Company Number: US-JNJFOC-20070104451

PATIENT
  Age: 43 Year
  Sex: Female

DRUGS (4)
  1. TRAMADOL HCL [Suspect]
     Indication: UNEVALUABLE EVENT
  2. ETHANOL [Suspect]
     Indication: DRUG USE FOR UNKNOWN INDICATION
  3. ANTICONVULSANT [Suspect]
     Indication: UNEVALUABLE EVENT
  4. ACETAMINOPHEN AND HYDROCODONE BITARTRATE [Suspect]
     Indication: DRUG USE FOR UNKNOWN INDICATION

REACTIONS (6)
  - ALCOHOL USE [None]
  - CONVULSION [None]
  - DRUG ABUSER [None]
  - DRUG TOXICITY [None]
  - MULTIPLE DRUG OVERDOSE [None]
  - SUICIDE ATTEMPT [None]
